FAERS Safety Report 4652353-7 (Version None)
Quarter: 2005Q2

REPORT INFORMATION
  Report Type: 
  Country: None (occurrence: None)
  Receive Date: 20050504
  Receipt Date: 20050422
  Transmission Date: 20051028
  Serious: Yes (Hospitalization)
  Sender: FDA-Public Use
  Company Number: 2003-4284

PATIENT
  Sex: Male

DRUGS (7)
  1. LITHIUM CARBONATE [Suspect]
     Indication: DRUG USE FOR UNKNOWN INDICATION
     Route: 048
     Dates: end: 20030822
  2. ASPIRIN [Concomitant]
     Indication: PROPHYLAXIS
     Dosage: 100MG PER DAY
     Route: 048
  3. METOPROLOL SUCCINATE [Concomitant]
     Dosage: 100MG PER DAY
     Route: 048
  4. ELTROXIN [Concomitant]
     Dosage: .05MG PER DAY
     Route: 048
  5. ARICEPT [Concomitant]
     Dosage: 10MG PER DAY
     Route: 048
  6. LACTULOSE [Concomitant]
     Route: 048
  7. CALCIMAGON [Concomitant]
     Route: 048

REACTIONS (2)
  - HYPERNATRAEMIA [None]
  - NEPHROGENIC DIABETES INSIPIDUS [None]
